FAERS Safety Report 12850351 (Version 2)
Quarter: 2016Q4

REPORT INFORMATION
  Report Type: Report from Study
  Country: MX (occurrence: MX)
  Receive Date: 20161014
  Receipt Date: 20161028
  Transmission Date: 20170207
  Serious: Yes (Death, Other)
  Sender: FDA-Public Use
  Company Number: MX-UCBSA-2016039508

PATIENT
  Age: 3 Day
  Sex: Female
  Weight: 8 kg

DRUGS (13)
  1. TOPIRAMATE. [Concomitant]
     Active Substance: TOPIRAMATE
     Indication: SEIZURE
     Dosage: UNK  (25 MG IN 2.5 ML OF WATER/12 HRS)
     Dates: start: 201509, end: 201602
  2. PYRIDOXINE [Concomitant]
     Active Substance: PYRIDOXINE
     Indication: PRODUCT USED FOR UNKNOWN INDICATION
     Dosage: UNK (1/2 OF A TABLET/12 HRS) (STRENGTH:30 MG)
     Dates: start: 201407, end: 201512
  3. CISAPRIDE [Concomitant]
     Active Substance: CISAPRIDE
     Indication: GASTROOESOPHAGEAL REFLUX DISEASE
     Dosage: 1 ML, 3X/DAY (TID)
     Dates: start: 201407, end: 201601
  4. LEVETIRACETAM. [Suspect]
     Active Substance: LEVETIRACETAM
     Indication: SEIZURE
     Dosage: 1.5 ML, 2X/DAY (BID) (100 MG/150 ML)
     Route: 048
     Dates: start: 201406
  5. VIGABATRIN [Concomitant]
     Active Substance: VIGABATRIN
     Indication: SEIZURE
     Dosage: 1200 MG, 2X/DAY (BID)
     Dates: start: 201406, end: 20160214
  6. FERROUS SULFATE. [Concomitant]
     Active Substance: FERROUS SULFATE
     Indication: OFF LABEL USE
  7. LEVETIRACETAM. [Suspect]
     Active Substance: LEVETIRACETAM
     Dosage: 2.5 ML, 2X/DAY (BID)
     Route: 048
     Dates: start: 201508, end: 20160214
  8. FOLIC ACID. [Concomitant]
     Active Substance: FOLIC ACID
     Indication: ANAEMIA
     Dosage: 1 DF, ONCE DAILY (QD)
     Dates: start: 201406, end: 20160214
  9. VALPROIC ACID. [Concomitant]
     Active Substance: VALPROIC ACID
     Indication: PRODUCT USED FOR UNKNOWN INDICATION
     Dosage: 3.5 MG, 2X/DAY (BID)
     Dates: start: 201407, end: 201602
  10. BIOTIN [Concomitant]
     Active Substance: BIOTIN
     Indication: PRODUCT USED FOR UNKNOWN INDICATION
     Dosage: UNK (1/2 OF TABLET/24 HRS)
     Dates: start: 201406, end: 201409
  11. PREDNISONE. [Concomitant]
     Active Substance: PREDNISONE
     Indication: SEIZURE
     Dosage: UNK (1/2 OF A TABLET/12 HRS) (STRENGTH:25 MG)
     Dates: start: 201510, end: 201602
  12. RANITIDINE. [Concomitant]
     Active Substance: RANITIDINE
     Indication: GASTRITIS
     Dosage: 3 ML, 3X/DAY (TID)
     Dates: start: 201407, end: 20160214
  13. FERROUS SULFATE. [Concomitant]
     Active Substance: FERROUS SULFATE
     Indication: ANAEMIA
     Dosage: UNK (4 DROPS /12 HRS) (STRENGTH:75 MG)
     Dates: start: 201406, end: 20160214

REACTIONS (8)
  - Septic shock [Fatal]
  - Early infantile epileptic encephalopathy with burst-suppression [Fatal]
  - H1N1 influenza [Fatal]
  - Fall [Unknown]
  - Thrombocytopenia [Unknown]
  - Respiratory distress [Fatal]
  - Peau d^orange [Unknown]
  - Off label use [Unknown]

NARRATIVE: CASE EVENT DATE: 201406
